FAERS Safety Report 19675906 (Version 1)
Quarter: 2021Q3

REPORT INFORMATION
  Report Type: Spontaneous
  Country: US (occurrence: US)
  Receive Date: 20210809
  Receipt Date: 20210809
  Transmission Date: 20211014
  Serious: No
  Sender: FDA-Public Use
  Company Number: US-TARO-2021TAR00615

PATIENT

DRUGS (1)
  1. IBUPROFEN ORAL SUSPENSION USP 100 MG/5 ML (OTC CHILDREN?S) [Suspect]
     Active Substance: IBUPROFEN
     Indication: PYREXIA
     Dosage: ONCE
     Route: 048
     Dates: start: 20210601

REACTIONS (3)
  - Product taste abnormal [Unknown]
  - Product physical consistency issue [Unknown]
  - Product odour abnormal [Unknown]

NARRATIVE: CASE EVENT DATE: 20210601
